FAERS Safety Report 6273919-7 (Version None)
Quarter: 2009Q3

REPORT INFORMATION
  Report Type: 
  Country: None (occurrence: None)
  Receive Date: 20090715
  Receipt Date: 20090702
  Transmission Date: 20100115
  Serious: Yes (Other)
  Sender: FDA-Public Use
  Company Number: BE-1169873

PATIENT
  Sex: Female

DRUGS (2)
  1. TRAVATAN [Suspect]
     Dosage: OPHTHALMIC
     Route: 047
  2. COMBIGAN (COMBIGAN) [Concomitant]

REACTIONS (2)
  - CHOLELITHIASIS [None]
  - HEPATITIS TOXIC [None]
